FAERS Safety Report 11086892 (Version 1)
Quarter: 2015Q2

REPORT INFORMATION
  Report Type: Spontaneous
  Country: PL (occurrence: None)
  Receive Date: 20150430
  Receipt Date: 20150430
  Transmission Date: 20150821
  Serious: Yes (Other)
  Sender: FDA-Public Use
  Company Number: 20151322

PATIENT
  Age: 58 Year
  Sex: Female
  Weight: 76 kg

DRUGS (1)
  1. METHOTREXATE [Suspect]
     Active Substance: METHOTREXATE
     Indication: MYCOSIS FUNGOIDES
     Route: 048
     Dates: start: 20150205, end: 20150212

REACTIONS (3)
  - Condition aggravated [None]
  - Genital erosion [None]
  - Erythema [None]

NARRATIVE: CASE EVENT DATE: 20150216
